FAERS Safety Report 19906231 (Version 1)
Quarter: 2021Q4

REPORT INFORMATION
  Report Type: Spontaneous
  Country: NL (occurrence: NL)
  Receive Date: 20211001
  Receipt Date: 20211001
  Transmission Date: 20220303
  Serious: Yes (Other)
  Sender: FDA-Public Use
  Company Number: NL-002147023-NVSC2021NL114160

PATIENT
  Sex: Male

DRUGS (1)
  1. IMATINIB. [Suspect]
     Active Substance: IMATINIB MESYLATE
     Indication: Chronic myeloid leukaemia
     Dosage: 400 MG
     Route: 065
     Dates: start: 202006

REACTIONS (10)
  - Fall [Unknown]
  - Lower limb fracture [Unknown]
  - Chronic lymphocytic leukaemia refractory [Unknown]
  - Thrombocytopenia [Unknown]
  - Myelosuppression [Unknown]
  - Neutropenia [Unknown]
  - Toxicity to various agents [Unknown]
  - Treatment failure [Unknown]
  - Cholelithiasis [Unknown]
  - Spinal column injury [Unknown]

NARRATIVE: CASE EVENT DATE: 20200601
